FAERS Safety Report 8896281 (Version 1)
Quarter: 2012Q4

REPORT INFORMATION
  Report Type: Spontaneous
  Country: US (occurrence: None)
  Receive Date: 20121106
  Receipt Date: 20121106
  Transmission Date: 20130627
  Serious: Yes (Life-Threatening)
  Sender: FDA-Public Use
  Company Number: None

PATIENT
  Age: 64 Year
  Sex: Male
  Weight: 83.9 kg

DRUGS (26)
  1. THYMOGLOBULIN [Suspect]
     Indication: ACUTE GRAFT REJECTION
     Dosage: over 4-6 hrs
     Route: 041
     Dates: start: 20121025, end: 20121026
  2. PREDNISONE [Concomitant]
  3. EVEROLIMUS [Concomitant]
  4. AZATHIPRINE [Concomitant]
  5. TACROLIMUS [Concomitant]
  6. TYLENOL [Concomitant]
  7. COMBIVENT [Concomitant]
  8. ALENDRONATE [Concomitant]
  9. AZITHROMYCIN [Concomitant]
  10. DOCUSATE [Concomitant]
  11. NEXIUM [Concomitant]
  12. GABAPENTIN [Concomitant]
  13. MAGNESIUM OXIDE [Concomitant]
  14. PRAVASTATIN [Concomitant]
  15. FLONASE [Concomitant]
  16. MELATONIN [Concomitant]
  17. FISH OIL [Concomitant]
  18. COENZYME Q10 [Concomitant]
  19. VITAMIN D [Concomitant]
  20. AMBIEN [Concomitant]
  21. LOW-DOSE ASPIRIN [Concomitant]
  22. BACTRIM [Concomitant]
  23. VALCYTE [Concomitant]
  24. MULTIVITAMIN [Concomitant]
  25. CLARITIN [Concomitant]
  26. LISINOPRIL [Concomitant]

REACTIONS (6)
  - Anaphylactoid reaction [None]
  - Pulmonary oedema [None]
  - Acute respiratory failure [None]
  - Haemoptysis [None]
  - Heart rate increased [None]
  - Blood pressure increased [None]
